APPROVED DRUG PRODUCT: SODIUM HEPARIN
Active Ingredient: HEPARIN SODIUM
Strength: 5,000 UNITS/ML
Dosage Form/Route: INJECTABLE;INJECTION
Application: N017033 | Product #002
Applicant: ABRAXIS PHARMACEUTICAL PRODUCTS
Approved: Approved Prior to Jan 1, 1982 | RLD: No | RS: No | Type: DISCN